FAERS Safety Report 25058857 (Version 1)
Quarter: 2025Q1

REPORT INFORMATION
  Report Type: Spontaneous
  Country: US (occurrence: None)
  Receive Date: 20250307
  Receipt Date: 20250307
  Transmission Date: 20250409
  Serious: Yes (Other)
  Sender: FDA-CTU
  Company Number: None

PATIENT
  Age: 77 Year
  Sex: Female
  Weight: 64.35 kg

DRUGS (11)
  1. AMLODIPINE [Suspect]
     Active Substance: AMLODIPINE BESYLATE
     Indication: Hypertension
     Dosage: 1 CAPSULE DAILY ORAL
     Route: 048
     Dates: start: 20241209
  2. VITAMINS [Concomitant]
     Active Substance: VITAMINS
  3. Fish Oil 1200MG [Concomitant]
  4. Vitamin C 500MG [Concomitant]
  5. Vitamin D -50,000IU [Concomitant]
  6. PROBIOTICS NOS [Concomitant]
     Active Substance: PROBIOTICS NOS
  7. B12-250MG [Concomitant]
  8. Hair complex [Concomitant]
  9. Natrol Juice [Concomitant]
  10. Quinol [Concomitant]
  11. Magnesium 250 mg [Concomitant]

REACTIONS (1)
  - Diarrhoea [None]

NARRATIVE: CASE EVENT DATE: 20250307
